FAERS Safety Report 6292905-4 (Version None)
Quarter: 2009Q3

REPORT INFORMATION
  Report Type: 
  Country: None (occurrence: None)
  Receive Date: 20090731
  Receipt Date: 20090720
  Transmission Date: 20100115
  Serious: Yes (Other)
  Sender: FDA-Public Use
  Company Number: US-PFIZER INC-2008022009

PATIENT
  Sex: Female
  Weight: 90 kg

DRUGS (11)
  1. CHANTIX [Interacting]
     Indication: SMOKING CESSATION THERAPY
     Dosage: 1 MG, 2X/DAY
     Route: 048
     Dates: start: 20080201, end: 20090720
  2. XANAX [Suspect]
     Dosage: 1 MG, 1X/DAY
  3. VICODIN [Interacting]
     Indication: PAIN IN EXTREMITY
  4. ALTACE [Concomitant]
  5. ATACAND [Concomitant]
  6. VERAPAMIL [Concomitant]
  7. MONTELUKAST SODIUM [Concomitant]
  8. DITROPAN [Concomitant]
  9. ATENOLOL [Concomitant]
  10. LASIX [Concomitant]
  11. DOXAZOSIN MESYLATE [Concomitant]

REACTIONS (19)
  - BLOOD PRESSURE INCREASED [None]
  - BURNING SENSATION [None]
  - DEPRESSION [None]
  - DRUG DEPENDENCE [None]
  - DRUG INTERACTION [None]
  - ERYTHEMA [None]
  - HOT FLUSH [None]
  - LYME DISEASE [None]
  - MALAISE [None]
  - MEMORY IMPAIRMENT [None]
  - MYDRIASIS [None]
  - PAIN IN EXTREMITY [None]
  - PALPITATIONS [None]
  - PERIPHERAL COLDNESS [None]
  - RHEUMATOID ARTHRITIS [None]
  - SLEEP DISORDER [None]
  - SOMNOLENCE [None]
  - SUICIDAL IDEATION [None]
  - SYSTEMIC LUPUS ERYTHEMATOSUS [None]
